FAERS Safety Report 19467902 (Version 1)
Quarter: 2021Q2

REPORT INFORMATION
  Report Type: Report from Study
  Country: US (occurrence: US)
  Receive Date: 20210628
  Receipt Date: 20210628
  Transmission Date: 20210717
  Serious: Yes (Hospitalization)
  Sender: FDA-Public Use
  Company Number: US-GLAXOSMITHKLINE-2019-TSO02360-US

PATIENT
  Age: 83 Year
  Sex: Male

DRUGS (4)
  1. DOSTARLIMAB [Suspect]
     Active Substance: DOSTARLIMAB
     Indication: NEOPLASM
     Dosage: 500 MG
     Route: 042
     Dates: start: 20181231, end: 20181231
  2. COBOLIMAB. [Suspect]
     Active Substance: COBOLIMAB
     Indication: NEOPLASM
     Dosage: 900 MG
     Route: 042
     Dates: start: 20181231, end: 20181231
  3. DOSTARLIMAB [Suspect]
     Active Substance: DOSTARLIMAB
     Dosage: 500 MG
     Route: 042
     Dates: start: 20190417, end: 20190417
  4. COBOLIMAB. [Suspect]
     Active Substance: COBOLIMAB
     Dosage: 900 MG
     Route: 042
     Dates: start: 20190417, end: 20190417

REACTIONS (2)
  - Pneumonitis [Recovered/Resolved]
  - Condition aggravated [Recovered/Resolved]

NARRATIVE: CASE EVENT DATE: 20190624
